FAERS Safety Report 14056171 (Version 1)
Quarter: 2017Q4

REPORT INFORMATION
  Report Type: Report from Study
  Country: BR (occurrence: BR)
  Receive Date: 20171006
  Receipt Date: 20171006
  Transmission Date: 20180321
  Serious: Yes (Other)
  Sender: FDA-Public Use
  Company Number: PHHY2017BR144738

PATIENT
  Sex: Female

DRUGS (4)
  1. DIOVAN TRIPLE [Suspect]
     Active Substance: AMLODIPINE BESYLATE\HYDROCHLOROTHIAZIDE\VALSARTAN
     Indication: PRODUCT USED FOR UNKNOWN INDICATION
     Dosage: (AMLODPINE 5 MG/HYDROCHLOROTHIAZIDE 12.5 MG/VALSARTAN 160 MG)
     Route: 065
  2. EXFORGE HCT [Suspect]
     Active Substance: AMLODIPINE BESYLATE\HYDROCHLOROTHIAZIDE\VALSARTAN
     Indication: PRODUCT USED FOR UNKNOWN INDICATION
     Dosage: 2 DF (AMLODIPINE 5 MG/VALSARTAN 160 MG/HYDROCHLOROTHIAZIDE 12.5 MG), QD
     Route: 065
  3. EXFORGE HCT [Suspect]
     Active Substance: AMLODIPINE BESYLATE\HYDROCHLOROTHIAZIDE\VALSARTAN
     Dosage: 1 DF (AMLODIPINE 5 MG/VALSARTAN 160 MG/HYDROCHLOROTHIAZIDE 12.5 MG), QD
     Route: 065
  4. CAPTOPRIL. [Concomitant]
     Active Substance: CAPTOPRIL
     Indication: PRODUCT USED FOR UNKNOWN INDICATION
     Route: 065

REACTIONS (7)
  - Dysstasia [Unknown]
  - Depressed mood [Unknown]
  - Inappropriate schedule of drug administration [Unknown]
  - Hypertensive crisis [Unknown]
  - Hypoacusis [Unknown]
  - Malaise [Unknown]
  - Drug ineffective [Unknown]
